FAERS Safety Report 17620138 (Version 1)
Quarter: 2020Q2

REPORT INFORMATION
  Report Type: Spontaneous
  Country: US (occurrence: US)
  Receive Date: 20200403
  Receipt Date: 20200403
  Transmission Date: 20200713
  Serious: Yes (Other)
  Sender: FDA-Public Use
  Company Number: US-SA-2020SA081243

PATIENT

DRUGS (1)
  1. ZANTAC 75 [Suspect]
     Active Substance: RANITIDINE HYDROCHLORIDE
     Dosage: UNK, ONE TO THREE TIMES PER DAY
     Route: 065
     Dates: start: 1990, end: 2018

REACTIONS (2)
  - Anxiety [Unknown]
  - Colorectal cancer [Unknown]

NARRATIVE: CASE EVENT DATE: 1998
